FAERS Safety Report 15285498 (Version 1)
Quarter: 2018Q3

REPORT INFORMATION
  Report Type: Spontaneous
  Country: BE (occurrence: BE)
  Receive Date: 20180816
  Receipt Date: 20180816
  Transmission Date: 20181010
  Serious: Yes (Other)
  Sender: FDA-Public Use
  Company Number: BE-TEVA-2018-BE-942625

PATIENT
  Sex: Female

DRUGS (2)
  1. DIAZEPAM. [Suspect]
     Active Substance: DIAZEPAM
     Dosage: 1 DOSAGE FORMS DAILY;
     Route: 048
  2. DICLOFENAC RETARD [Concomitant]
     Active Substance: DICLOFENAC
     Indication: PAIN
     Route: 048

REACTIONS (3)
  - Seizure [Recovered/Resolved]
  - Chills [Recovered/Resolved]
  - Somnolence [Recovered/Resolved]
